FAERS Safety Report 26099856 (Version 1)
Quarter: 2025Q4

REPORT INFORMATION
  Report Type: Spontaneous
  Country: US (occurrence: US)
  Receive Date: 20251128
  Receipt Date: 20251128
  Transmission Date: 20260117
  Serious: No
  Sender: ALKEM
  Company Number: None

PATIENT
  Age: 17 Year
  Sex: Female

DRUGS (2)
  1. QUETIAPINE FUMARATE [Suspect]
     Active Substance: QUETIAPINE FUMARATE
     Indication: Psychotic symptom
     Dosage: 25 MILLIGRAM, ONCE (TOTAL)
     Route: 048
     Dates: start: 202406
  2. OLANZAPINE [Suspect]
     Active Substance: OLANZAPINE
     Indication: Psychotic symptom
     Dosage: 1.25 MILLIGRAM, HS (VIA GASTROSTOMY TUBE) ONE DOSE
     Route: 065

REACTIONS (3)
  - Urinary incontinence [Unknown]
  - Sedation [Unknown]
  - Sedation [Unknown]

NARRATIVE: CASE EVENT DATE: 20240601
